FAERS Safety Report 8761817 (Version 3)
Quarter: 2012Q4

REPORT INFORMATION
  Report Type: Spontaneous
  Country: ES (occurrence: None)
  Receive Date: 20120823
  Receipt Date: 20121003
  Transmission Date: 20130627
  Serious: Yes (Other)
  Sender: FDA-Public Use
  Company Number: DSA_59037_2012

PATIENT
  Age: 31 Year
  Sex: Female

DRUGS (12)
  1. METRONIDAZOLE [Suspect]
     Indication: ECZEMA
     Dates: start: 20110928
  2. QUETIAPINE FUMARATE [Suspect]
     Indication: ABNORMAL BEHAVIOUR
     Dates: start: 20110921, end: 20111004
  3. QUETIAPINE FUMARATE [Suspect]
     Indication: ABNORMAL BEHAVIOUR
     Dates: start: 20111005
  4. QUETIAPINE FUMARATE [Suspect]
     Indication: ABNORMAL BEHAVIOUR
     Dates: end: 20110904
  5. QUETIAPINE FUMARATE [Suspect]
     Indication: ABNORMAL BEHAVIOUR
     Dates: start: 20110905, end: 20110920
  6. SERTRALINE [Concomitant]
  7. CLONAZEPAM [Concomitant]
  8. DIAZEPAM [Concomitant]
  9. OMEPRAZOLE [Concomitant]
  10. IBUPROFEN [Concomitant]
  11. PARACETAMOL [Concomitant]
  12. AMOXI-CLAVULANATE [Concomitant]

REACTIONS (2)
  - Parkinsonism [None]
  - Drug interaction [None]
